FAERS Safety Report 20775302 (Version 1)
Quarter: 2022Q2

REPORT INFORMATION
  Report Type: Spontaneous
  Country: FR (occurrence: FR)
  Receive Date: 20220502
  Receipt Date: 20220502
  Transmission Date: 20220721
  Serious: Yes (Other)
  Sender: FDA-Public Use
  Company Number: FR-002147023-NVSC2022FR091744

PATIENT

DRUGS (1)
  1. RUXOLITINIB [Suspect]
     Active Substance: RUXOLITINIB
     Indication: Dermatomyositis
     Dosage: 0.7 MG/KG, QD
     Route: 065

REACTIONS (5)
  - Dermatomyositis [Unknown]
  - Condition aggravated [Unknown]
  - Therapy non-responder [Unknown]
  - Product use issue [Unknown]
  - Product use in unapproved indication [Unknown]
